FAERS Safety Report 15461481 (Version 2)
Quarter: 2018Q4

REPORT INFORMATION
  Report Type: Spontaneous
  Country: CL (occurrence: CL)
  Receive Date: 20181003
  Receipt Date: 20181014
  Transmission Date: 20190204
  Serious: Yes (Death, Life-Threatening, Hospitalization, Other)
  Sender: FDA-Public Use
  Company Number: CL-PRINSTON PHARMACEUTICAL INC.-2018PRN01429

PATIENT
  Age: 65 Year
  Sex: Female

DRUGS (3)
  1. WINE [Suspect]
     Active Substance: WINE
     Dosage: TWO GLASSES, ONCE
     Route: 048
     Dates: start: 201702, end: 201702
  2. CHLORPROMAZINE. [Suspect]
     Active Substance: CHLORPROMAZINE
     Dosage: 1.5 G, ONCE
     Route: 048
     Dates: start: 201702, end: 201702
  3. BUPROPION HYDROCHLORIDE. [Suspect]
     Active Substance: BUPROPION HYDROCHLORIDE
     Dosage: 9.5 G, ONCE
     Route: 048
     Dates: start: 201702, end: 201702

REACTIONS (9)
  - Hypotension [Unknown]
  - Electrocardiogram QT prolonged [Unknown]
  - Overdose [Fatal]
  - Tachycardia [Unknown]
  - Brain injury [Fatal]
  - Seizure [Unknown]
  - Coma [Not Recovered/Not Resolved]
  - Cardiac arrest [Recovered/Resolved]
  - Gaze palsy [Recovered/Resolved]
